FAERS Safety Report 23960719 (Version 2)
Quarter: 2024Q2

REPORT INFORMATION
  Report Type: Spontaneous
  Country: BR (occurrence: BR)
  Receive Date: 20240611
  Receipt Date: 20240613
  Transmission Date: 20240716
  Serious: Yes (Other)
  Sender: FDA-Public Use
  Company Number: BR-PFIZER INC-PV202400075220

PATIENT
  Age: 28 Year
  Sex: Male
  Weight: 76.55 kg

DRUGS (4)
  1. RITUXIMAB [Suspect]
     Active Substance: RITUXIMAB
     Indication: Kaposi^s sarcoma
     Dosage: 700 UNK
     Route: 042
     Dates: start: 20240507, end: 20240507
  2. LAMIVUDINE\TENOFOVIR [Concomitant]
     Active Substance: LAMIVUDINE\TENOFOVIR
     Dosage: 300 MG
  3. DOLUTEGRAVIR [Concomitant]
     Active Substance: DOLUTEGRAVIR
     Dosage: 50 MG
  4. SERTRALINE [Concomitant]
     Active Substance: SERTRALINE HYDROCHLORIDE
     Dosage: 50 MG

REACTIONS (3)
  - Abdominal pain [Unknown]
  - Pruritus [Unknown]
  - Erythema [Unknown]

NARRATIVE: CASE EVENT DATE: 20240507
